FAERS Safety Report 6144918-0 (Version None)
Quarter: 2009Q2

REPORT INFORMATION
  Report Type: 
  Country: None (occurrence: None)
  Receive Date: 20090406
  Receipt Date: 20090331
  Transmission Date: 20091009
  Serious: Yes (Hospitalization)
  Sender: FDA-Public Use
  Company Number: BE-MERCK-0711BEL00017

PATIENT
  Age: 58 Year
  Sex: Male
  Weight: 59 kg

DRUGS (10)
  1. VORICONAZOLE [Concomitant]
     Indication: ASPERGILLOSIS
     Route: 048
     Dates: start: 20070716, end: 20070723
  2. CANCIDAS [Suspect]
     Indication: ASPERGILLOSIS
     Route: 041
     Dates: start: 20070726, end: 20070817
  3. CANCIDAS [Suspect]
     Route: 041
     Dates: start: 20070818, end: 20070831
  4. AMPHOTERICIN B [Suspect]
     Indication: ASPERGILLOSIS
     Route: 041
     Dates: start: 20070727, end: 20070809
  5. AMPHOTERICIN B [Suspect]
     Route: 041
     Dates: start: 20070820, end: 20071021
  6. ABELCET [Suspect]
     Indication: ASPERGILLOSIS
     Route: 041
     Dates: start: 20071022, end: 20071109
  7. AMOXICILLIN [Concomitant]
     Route: 065
     Dates: start: 20071020, end: 20071021
  8. SULFAMETHOXAZOLE AND TRIMETHOPRIM [Concomitant]
     Route: 065
  9. TACROLIMUS [Concomitant]
     Route: 065
  10. SIROLIMUS [Concomitant]
     Route: 048

REACTIONS (2)
  - NEPHROPATHY TOXIC [None]
  - RENAL FAILURE [None]
